FAERS Safety Report 7822960-9 (Version None)
Quarter: 2011Q4

REPORT INFORMATION
  Report Type: 
  Country: None (occurrence: None)
  Receive Date: 20111018
  Receipt Date: 20101220
  Transmission Date: 20120403
  Serious: No
  Sender: FDA-Public Use
  Company Number: US-ASTRAZENECA-2010SE60023

PATIENT
  Age: 53 Year
  Sex: Female

DRUGS (1)
  1. SYMBICORT [Suspect]
     Route: 055
     Dates: end: 20101201

REACTIONS (3)
  - LOWER RESPIRATORY TRACT INFECTION [None]
  - DRUG DOSE OMISSION [None]
  - NASOPHARYNGITIS [None]
